FAERS Safety Report 11694050 (Version 2)
Quarter: 2015Q4

REPORT INFORMATION
  Report Type: Other
  Country: FR (occurrence: FR)
  Receive Date: 20151103
  Receipt Date: 20151112
  Transmission Date: 20160304
  Serious: Yes (Death)
  Sender: FDA-Public Use
  Company Number: FR-SYMPLMED PHARMACEUTICALS-2015SYMPLMED000062

PATIENT

DRUGS (8)
  1. COVERSYL [Suspect]
     Active Substance: PERINDOPRIL
     Indication: HYPERTENSION
     Dosage: 2.5 MG, QD
     Route: 048
     Dates: end: 20151011
  2. BRIMONIDINE TARTRATE. [Concomitant]
     Active Substance: BRIMONIDINE TARTRATE
     Indication: GLAUCOMA
     Dosage: 0.2% (1 DF, BID)
  3. CATIONORM [Concomitant]
     Indication: GLAUCOMA
     Dosage: 1 DF, PRN
  4. TRAVATAN [Concomitant]
     Active Substance: TRAVOPROST
     Indication: GLAUCOMA
     Dosage: 1 DF, BID
  5. KARDEGIC [Suspect]
     Active Substance: ASPIRIN LYSINE
     Indication: AORTIC VALVE REPLACEMENT
     Dosage: 75 MG, QD
     Route: 048
     Dates: end: 20151011
  6. AZARGA [Concomitant]
     Active Substance: BRINZOLAMIDE\TIMOLOL MALEATE
     Indication: GLAUCOMA
     Dosage: 1 DF, BID
  7. PREVISCAN                          /00789001/ [Suspect]
     Active Substance: FLUINDIONE
     Indication: AORTIC VALVE REPLACEMENT
     Dosage: 15 MG OR 10 MG, QD
     Route: 048
     Dates: end: 20151011
  8. ACTILYSE [Suspect]
     Active Substance: ALTEPLASE
     Indication: THROMBOLYSIS
     Dosage: UNK
     Route: 042
     Dates: start: 20151011, end: 20151011

REACTIONS (3)
  - Haemorrhagic transformation stroke [Fatal]
  - Coma [Fatal]
  - Respiratory distress [Fatal]

NARRATIVE: CASE EVENT DATE: 20151011
